FAERS Safety Report 17284261 (Version 3)
Quarter: 2020Q1

REPORT INFORMATION
  Report Type: Spontaneous
  Country: RU (occurrence: RU)
  Receive Date: 20200117
  Receipt Date: 20200206
  Transmission Date: 20200409
  Serious: Yes (Other)
  Sender: FDA-Public Use
  Company Number: NVSC2020RU010379

PATIENT

DRUGS (4)
  1. ETOPOSIDE. [Suspect]
     Active Substance: ETOPOSIDE
     Indication: NEUROBLASTOMA
     Dosage: 100 MG/M2 (WITH 1 HOUR INFUSION ON DAY 8-10 OF THE CYCLE)
     Route: 042
  2. UROMITEXAN [Concomitant]
     Active Substance: MESNA
     Indication: PRODUCT USED FOR UNKNOWN INDICATION
     Dosage: 20 MG/M2 (3 TIMES BY INTRAVENOUS BOLUS OR PER OS AT HOUR 0, 4 AND 8 FROM THE START OF CYCLOPHOSPHAMI
     Route: 040
  3. CYCLOPHOSPHAMIDE. [Concomitant]
     Active Substance: CYCLOPHOSPHAMIDE
     Indication: NEUROBLASTOMA
     Dosage: 100 MG/M2 (WITH 1 HOUR INFUSION ON DAY 8-10 OF THE CYCLE)
     Route: 042
  4. TOPOTECAN [Suspect]
     Active Substance: TOPOTECAN HYDROCHLORIDE
     Indication: NEUROBLASTOMA
     Dosage: 1 MG/M2 (WITH 24 HOUR INFUSION ON DAY 1-7)
     Route: 042

REACTIONS (6)
  - Malignant neoplasm progression [Unknown]
  - Anaemia [Unknown]
  - Neuroblastoma [Unknown]
  - Product use in unapproved indication [Unknown]
  - Leukopenia [Unknown]
  - Thrombocytopenia [Unknown]
